FAERS Safety Report 20193236 (Version 2)
Quarter: 2022Q1

REPORT INFORMATION
  Report Type: Spontaneous
  Country: US (occurrence: None)
  Receive Date: 20211216
  Receipt Date: 20220215
  Transmission Date: 20220423
  Serious: No
  Sender: FDA-Public Use
  Company Number: 2021A864222

PATIENT
  Age: 59 Year
  Sex: Female
  Weight: 73.1 kg

DRUGS (2)
  1. BUDESONIDE\FORMOTEROL\GLYCOPYRRONIUM [Suspect]
     Active Substance: BUDESONIDE\FORMOTEROL\GLYCOPYRRONIUM
     Indication: Dyspnoea
     Route: 055
     Dates: start: 20210727
  2. AZITHROMYCIN [Concomitant]
     Active Substance: AZITHROMYCIN
     Dates: start: 202110

REACTIONS (2)
  - Bronchitis [Recovered/Resolved]
  - Laryngitis [Unknown]

NARRATIVE: CASE EVENT DATE: 20210922
